FAERS Safety Report 15559503 (Version 3)
Quarter: 2020Q1

REPORT INFORMATION
  Report Type: Report from Study
  Country: IE (occurrence: IE)
  Receive Date: 20181029
  Receipt Date: 20200314
  Transmission Date: 20200409
  Serious: Yes (Other)
  Sender: FDA-Public Use
  Company Number: IE-AMGEN-IRLSL2018101969

PATIENT
  Age: 82 Year
  Sex: Female

DRUGS (10)
  1. ARANESP [Suspect]
     Active Substance: DARBEPOETIN ALFA
     Dosage: 60 MICROGRAM, Q3WK
     Route: 065
  2. ATENOLOL. [Concomitant]
     Active Substance: ATENOLOL
     Dosage: 50 MG, QD
     Route: 050
  3. ALLOPURINOL. [Concomitant]
     Active Substance: ALLOPURINOL
     Dosage: 100 MG, QD
     Route: 065
  4. VALSARTAN. [Concomitant]
     Active Substance: VALSARTAN
     Dosage: 40 MG, QD
     Route: 050
  5. THORENS [Concomitant]
     Dosage: 25000 UNIT, QMO
     Route: 050
  6. LECALPIN [Concomitant]
     Dosage: 10 MG, QD
     Route: 050
  7. ARANESP [Suspect]
     Active Substance: DARBEPOETIN ALFA
     Indication: CHRONIC KIDNEY DISEASE
     Dosage: 60 MICROGRAM, QMO
     Route: 065
     Dates: start: 20171102
  8. ARANESP [Suspect]
     Active Substance: DARBEPOETIN ALFA
     Dosage: 40 MCG, Q2WK
     Route: 065
     Dates: start: 20171107
  9. ASPIRIN. [Concomitant]
     Active Substance: ASPIRIN
     Dosage: 75 MG, QD
     Route: 050
  10. FUROSEMIDE. [Concomitant]
     Active Substance: FUROSEMIDE
     Dosage: 20 MG, QD
     Route: 050

REACTIONS (3)
  - Cellulitis [Recovered/Resolved]
  - Cataract [Unknown]
  - Haemoglobin decreased [Not Recovered/Not Resolved]

NARRATIVE: CASE EVENT DATE: 20200306
